FAERS Safety Report 5819057-6 (Version None)
Quarter: 2008Q3

REPORT INFORMATION
  Report Type: 
  Country: None (occurrence: None)
  Receive Date: 20080721
  Receipt Date: 20080721
  Transmission Date: 20090109
  Serious: Yes (Hospitalization)
  Sender: FDA-Public Use
  Company Number: None

PATIENT
  Age: 15 Year
  Sex: Male
  Weight: 60 kg

DRUGS (1)
  1. BOTOX [Suspect]
     Indication: MUSCLE SPASTICITY
     Dosage: 200 UNITS ONCE IM
     Route: 030
     Dates: start: 20080417, end: 20080417

REACTIONS (2)
  - DYSPHAGIA [None]
  - STRIDOR [None]
